FAERS Safety Report 4768166-1 (Version None)
Quarter: 2005Q3

REPORT INFORMATION
  Report Type: 
  Country: None (occurrence: None)
  Receive Date: 20050908
  Receipt Date: 20050728
  Transmission Date: 20060218
  Serious: Yes (Disabling)
  Sender: FDA-Public Use
  Company Number: A03200502287

PATIENT
  Age: 53 Year
  Sex: Female

DRUGS (1)
  1. ELOXATIN [Suspect]
     Dosage: INTRAVENOUS NOS
     Route: 042
     Dates: start: 20050418, end: 20050418

REACTIONS (1)
  - NEUROPATHY PERIPHERAL [None]
